FAERS Safety Report 5692002-2 (Version None)
Quarter: 2008Q2

REPORT INFORMATION
  Report Type: 
  Country: None (occurrence: None)
  Receive Date: 20080402
  Receipt Date: 20080327
  Transmission Date: 20081010
  Serious: Yes (Hospitalization)
  Sender: FDA-Public Use
  Company Number: JP-SANOFI-SYNTHELABO-A01200800557

PATIENT
  Sex: Male
  Weight: 51 kg

DRUGS (2)
  1. HUMULIN R [Concomitant]
     Indication: DIABETES MELLITUS
     Dosage: 4 TO 12 UNITS
     Route: 058
     Dates: start: 20071019
  2. PLAVIX [Suspect]
     Indication: CEREBRAL INFARCTION
     Route: 048
     Dates: start: 20071019, end: 20071121

REACTIONS (1)
  - HEPATIC FUNCTION ABNORMAL [None]
